FAERS Safety Report 6861919-5 (Version None)
Quarter: 2010Q3

REPORT INFORMATION
  Report Type: 
  Country: None (occurrence: None)
  Receive Date: 20100721
  Receipt Date: 20100713
  Transmission Date: 20110219
  Serious: Yes (Hospitalization, Other)
  Sender: FDA-Public Use
  Company Number: US-ASTRAZENECA-2010SE33467

PATIENT
  Sex: Female

DRUGS (12)
  1. SEROQUEL [Suspect]
     Route: 048
     Dates: start: 20060207
  2. XANAX [Concomitant]
     Dosage: 0.25 PRN
     Dates: start: 20060207
  3. FLEXERIL [Concomitant]
     Dates: start: 20060207
  4. ALLOPURINOL [Concomitant]
     Dates: start: 20060207
  5. BUMEX [Concomitant]
     Dates: start: 20060207
  6. IMDUR [Concomitant]
     Dates: start: 20060207
  7. AMBIEN [Concomitant]
     Dates: start: 20060207
  8. INSULIN LISPRO [Concomitant]
     Dosage: PER SLIDING SCALE
     Dates: start: 20060207
  9. GLUCOPHAGE [Concomitant]
     Dates: start: 20060207
  10. ASPIRIN [Concomitant]
     Dates: start: 20060207
  11. AVANDIA [Concomitant]
     Dates: start: 20060207
  12. PREVACID [Concomitant]
     Dates: start: 20060207

REACTIONS (4)
  - ASTHMA [None]
  - DIABETES MELLITUS INADEQUATE CONTROL [None]
  - DIABETIC EYE DISEASE [None]
  - DIABETIC RETINOPATHY [None]
